FAERS Safety Report 8315794 (Version 2)
Quarter: 2014Q3

REPORT INFORMATION
  Report Type: Spontaneous
  Country: US (occurrence: US)
  Receive Date: 20111229
  Receipt Date: 20140801
  Transmission Date: 20150326
  Serious: Yes (Other)
  Sender: FDA-Public Use
  Company Number: US-GLAXOSMITHKLINE-A0829357A

PATIENT
  Sex: Male

DRUGS (1)
  1. AVANDIA [Suspect]
     Active Substance: ROSIGLITAZONE MALEATE
     Indication: DIABETES MELLITUS
     Dosage: 8MG PER DAY
     Route: 048
     Dates: start: 20001008, end: 2001

REACTIONS (6)
  - Diplegia [Unknown]
  - Weight increased [Unknown]
  - Visual impairment [Unknown]
  - Chest pain [Unknown]
  - Urticaria [Unknown]
  - Cardiac disorder [Not Recovered/Not Resolved]
